FAERS Safety Report 5427072-X (Version None)
Quarter: 2007Q3

REPORT INFORMATION
  Report Type: 
  Country: None (occurrence: None)
  Receive Date: 20070828
  Receipt Date: 20070817
  Transmission Date: 20080115
  Serious: Yes (Hospitalization, Other)
  Sender: FDA-Public Use
  Company Number: PHNU2007DE02884

PATIENT
  Sex: Female
  Weight: 3.6 kg

DRUGS (1)
  1. GLEEVEC [Suspect]
     Indication: CHRONIC MYELOID LEUKAEMIA
     Dosage: FOETAL DRUG EXPOSURE VIA FATHER
     Route: 048
     Dates: start: 20060201

REACTIONS (3)
  - PREMATURE BABY [None]
  - RESPIRATORY DISORDER [None]
  - TRANSMISSION OF DRUG VIA SEMEN [None]
